FAERS Safety Report 19135014 (Version 2)
Quarter: 2021Q2

REPORT INFORMATION
  Report Type: Spontaneous
  Country: US (occurrence: US)
  Receive Date: 20210414
  Receipt Date: 20210421
  Transmission Date: 20210717
  Serious: Yes (Other)
  Sender: FDA-Public Use
  Company Number: US-PFIZER INC-2021372311

PATIENT
  Age: 38 Year
  Sex: Female

DRUGS (3)
  1. IBRANCE [Suspect]
     Active Substance: PALBOCICLIB
     Indication: BREAST CANCER FEMALE
     Dosage: 100 MG, 1X/DAY
     Dates: start: 20210217, end: 20210319
  2. IBRANCE [Suspect]
     Active Substance: PALBOCICLIB
     Dosage: 100 MG, CYCLIC (ONCE DAILY FOR 14 DAYS ON AND 14 DAYS OFF)
  3. IBRANCE [Suspect]
     Active Substance: PALBOCICLIB
     Dosage: 100 MG, CYCLIC (ONCE DAILY FOR 21 DAYS ON AND 7 DAYS OFF)
     Dates: start: 20210217, end: 20210315

REACTIONS (4)
  - Thrombocytopenia [Unknown]
  - Neutropenia [Unknown]
  - Blood count abnormal [Unknown]
  - Anaemia [Unknown]

NARRATIVE: CASE EVENT DATE: 2021
